FAERS Safety Report 22313575 (Version 1)
Quarter: 2023Q2

REPORT INFORMATION
  Report Type: Spontaneous
  Country: US (occurrence: US)
  Receive Date: 20230512
  Receipt Date: 20230512
  Transmission Date: 20230722
  Serious: Yes (Other)
  Sender: FDA-Public Use
  Company Number: US-REGENERON PHARMACEUTICALS, INC.-2023-063469

PATIENT
  Age: 65 Year
  Sex: Female

DRUGS (3)
  1. EYLEA [Suspect]
     Active Substance: AFLIBERCEPT
     Indication: Diabetic retinopathy
     Dosage: 2 MG, EVERY 4 WEEKS, INTO RIGHT EYE, FORMULATION: UNKNOWN
     Dates: start: 202201
  2. EYLEA [Suspect]
     Active Substance: AFLIBERCEPT
     Indication: Scar
     Dosage: 4 MG, EVERY 4 WEEKS, INTO RIGHT EYE, FORMULATION: UNKNOWN
     Dates: start: 202205
  3. INSULIN NOS [Concomitant]
     Active Substance: INSULIN NOS
     Indication: Product used for unknown indication

REACTIONS (5)
  - Blindness transient [Unknown]
  - Incorrect dose administered [Unknown]
  - Therapeutic response shortened [Unknown]
  - Blood pressure systolic increased [Unknown]
  - Eye swelling [Unknown]

NARRATIVE: CASE EVENT DATE: 20220101
